FAERS Safety Report 4436269-7 (Version None)
Quarter: 2004Q3

REPORT INFORMATION
  Report Type: 
  Country: None (occurrence: None)
  Receive Date: 20040830
  Receipt Date: 20040617
  Transmission Date: 20050211
  Serious: Yes (Other)
  Sender: FDA-Public Use
  Company Number: US-BRISTOL-MYERS SQUIBB COMPANY-12619086

PATIENT
  Age: 71 Year
  Sex: Male
  Weight: 112 kg

DRUGS (9)
  1. ERBITUX [Suspect]
     Indication: COLON CANCER METASTATIC
     Dosage: LOAD DOSE (800MG) 19-MAY-04, WEEKLY DOSES OF 500 MG
     Route: 042
     Dates: start: 20040101, end: 20040101
  2. IRINOTECAN [Suspect]
     Dosage: GIVEN ON 19-MAY-04, WITH WEEKLY TREATMENTS
  3. LOMOTIL [Concomitant]
  4. ZOFRAN [Concomitant]
  5. SODIUM BICARBONATE [Concomitant]
  6. CLONIDINE HCL [Concomitant]
  7. INSULIN [Concomitant]
  8. DILTIAZEM HCL [Concomitant]
  9. DICLOFENAC [Concomitant]

REACTIONS (3)
  - DERMATITIS ACNEIFORM [None]
  - NEUTROPENIA [None]
  - WHITE BLOOD CELL COUNT DECREASED [None]
